FAERS Safety Report 19720864 (Version 1)
Quarter: 2021Q3

REPORT INFORMATION
  Report Type: Spontaneous
  Country: US (occurrence: US)
  Receive Date: 20210819
  Receipt Date: 20210819
  Transmission Date: 20211014
  Serious: Yes (Other)
  Sender: FDA-Public Use
  Company Number: None

PATIENT
  Age: 51 Year
  Sex: Female
  Weight: 76.95 kg

DRUGS (2)
  1. IMDEVIMAB. [Suspect]
     Active Substance: IMDEVIMAB
     Dosage: ?          OTHER FREQUENCY:ONE TIME;?
     Route: 041
     Dates: start: 20210818, end: 20210818
  2. CASIRIVIMAB. [Suspect]
     Active Substance: CASIRIVIMAB
     Indication: COVID-19 TREATMENT
     Dosage: ?          OTHER FREQUENCY:ONE TIME;?
     Route: 041
     Dates: start: 20210818, end: 20210818

REACTIONS (9)
  - Hypersensitivity [None]
  - Dizziness [None]
  - Feeling abnormal [None]
  - Paraesthesia oral [None]
  - Abdominal discomfort [None]
  - Dyspnoea [None]
  - Hypertension [None]
  - Nausea [None]
  - Heart rate increased [None]
